FAERS Safety Report 7410710-X (Version None)
Quarter: 2011Q1

REPORT INFORMATION
  Report Type: 
  Country: None (occurrence: None)
  Receive Date: 20110302
  Receipt Date: 20101119
  Transmission Date: 20110831
  Serious: No
  Sender: FDA-Public Use
  Company Number: 012428

PATIENT
  Sex: Female
  Weight: 48.1 kg

DRUGS (2)
  1. VITAMINS NOS [Concomitant]
  2. CIMZIA [Suspect]
     Indication: CROHN'S DISEASE
     Dosage: (SUBCUTANEOUS)
     Route: 058
     Dates: start: 20100524, end: 20100101

REACTIONS (8)
  - ABDOMINAL PAIN UPPER [None]
  - PALPITATIONS [None]
  - MALAISE [None]
  - CHEST DISCOMFORT [None]
  - HEADACHE [None]
  - DYSPNOEA [None]
  - DECREASED APPETITE [None]
  - FATIGUE [None]
